FAERS Safety Report 19799053 (Version 1)
Quarter: 2021Q3

REPORT INFORMATION
  Report Type: Other
  Country: IL (occurrence: IL)
  Receive Date: 20210907
  Receipt Date: 20210907
  Transmission Date: 20211014
  Serious: Yes (Other)
  Sender: FDA-Public Use
  Company Number: IL-ROCHE-2898434

PATIENT
  Age: 31 Year
  Sex: Female

DRUGS (1)
  1. OCREVUS [Suspect]
     Active Substance: OCRELIZUMAB
     Indication: RELAPSING-REMITTING MULTIPLE SCLEROSIS
     Route: 042

REACTIONS (3)
  - Fatigue [Unknown]
  - Multiple sclerosis relapse [Unknown]
  - Limb discomfort [Unknown]

NARRATIVE: CASE EVENT DATE: 20210818
